FAERS Safety Report 5337310-X (Version None)
Quarter: 2007Q2

REPORT INFORMATION
  Report Type: 
  Country: None (occurrence: None)
  Receive Date: 20070315
  Receipt Date: 20061212
  Transmission Date: 20071010
  Serious: Yes (Life-Threatening)
  Sender: FDA-Public Use
  Company Number: PHEH2006US13380

PATIENT
  Age: 49 Year
  Sex: Male

DRUGS (9)
  1. TRILEPTAL [Suspect]
     Indication: TRIGEMINAL NEURALGIA
     Dosage: SEE IMAGE
     Route: 048
     Dates: start: 20060801
  2. DEPAKOTE [Concomitant]
  3. BETASERON (ALBUMIN HUMAN, GLUCOSE, INTERFERON BETA) [Concomitant]
  4. TRICOR [Concomitant]
  5. NEXIUM [Concomitant]
  6. CARDIZEM CD [Concomitant]
  7. BENICAR [Concomitant]
  8. LIVITRA (VARDENAFIL HYDROCHLORIDE) [Concomitant]
  9. LISINOPRIL [Concomitant]

REACTIONS (1)
  - HYPONATRAEMIA [None]
